FAERS Safety Report 4618307-1 (Version None)
Quarter: 2005Q1

REPORT INFORMATION
  Report Type: 
  Country: None (occurrence: None)
  Receive Date: 20050323
  Receipt Date: 20050308
  Transmission Date: 20050727
  Serious: Yes (Other)
  Sender: FDA-Public Use
  Company Number: FR_050305985

PATIENT
  Sex: Male

DRUGS (1)
  1. ZYPREXA [Suspect]
     Indication: BIPOLAR DISORDER
     Dosage: 20 MG DAY

REACTIONS (1)
  - HEPATITIS C [None]
